FAERS Safety Report 11526465 (Version 1)
Quarter: 2015Q3

REPORT INFORMATION
  Report Type: Spontaneous
  Country: US (occurrence: US)
  Receive Date: 20150903
  Receipt Date: 20150903
  Transmission Date: 20151125
  Serious: No
  Sender: FDA-Public Use
  Company Number: US-ELI_LILLY_AND_COMPANY-US201310004376

PATIENT
  Age: 59 Year
  Sex: Female

DRUGS (2)
  1. CYMBALTA [Suspect]
     Active Substance: DULOXETINE HYDROCHLORIDE
     Indication: ANXIETY
     Dosage: 30 MG, QD
  2. CYMBALTA [Suspect]
     Active Substance: DULOXETINE HYDROCHLORIDE
     Indication: OSTEOARTHRITIS

REACTIONS (8)
  - Rash [Unknown]
  - Drug administration error [Unknown]
  - Weight increased [Unknown]
  - Feeling hot [Unknown]
  - Dry skin [Unknown]
  - Dizziness [Recovered/Resolved]
  - Skin fissures [Unknown]
  - Gastrooesophageal reflux disease [Unknown]
